FAERS Safety Report 23617281 (Version 1)
Quarter: 2024Q1

REPORT INFORMATION
  Report Type: Spontaneous
  Country: US (occurrence: None)
  Receive Date: 20240311
  Receipt Date: 20240311
  Transmission Date: 20240410
  Serious: Yes (Hospitalization)
  Sender: FDA-Public Use
  Company Number: None

PATIENT
  Sex: Male

DRUGS (1)
  1. TETRABENAZINE [Suspect]
     Active Substance: TETRABENAZINE
     Indication: Chorea
     Dosage: FREQUENCY : TWICE A DAY;?
     Route: 048
     Dates: start: 202402

REACTIONS (3)
  - Pneumonia [None]
  - Oxygen saturation decreased [None]
  - Hallucination [None]
